FAERS Safety Report 4662121-8 (Version None)
Quarter: 2005Q2

REPORT INFORMATION
  Report Type: 
  Country: None (occurrence: None)
  Receive Date: 20050512
  Receipt Date: 20050419
  Transmission Date: 20051028
  Serious: Yes (Other)
  Sender: FDA-Public Use
  Company Number: 2004205035US

PATIENT
  Age: 53 Year
  Sex: Male
  Weight: 96.6162 kg

DRUGS (9)
  1. CELEBREX [Suspect]
     Indication: ILL-DEFINED DISORDER
  2. OMEPRAZOLE [Concomitant]
  3. WARFARIN SODIUM [Concomitant]
  4. PANTOPRAZOLE SODIUM [Concomitant]
  5. PHENYTOIN SODIUM [Concomitant]
  6. CARISOPRODOL [Concomitant]
  7. PROPACET 100 [Concomitant]
  8. CENTRUM (MINERALS NOS, VITAMINS NOS) [Concomitant]
  9. ASPIRIN [Concomitant]

REACTIONS (27)
  - APHASIA [None]
  - ARTHRALGIA [None]
  - ASTHENIA [None]
  - ATRIAL HYPERTROPHY [None]
  - BLOOD TRIGLYCERIDES INCREASED [None]
  - CARDIOMEGALY [None]
  - CEREBROVASCULAR ACCIDENT [None]
  - CEREBROVASCULAR DISORDER [None]
  - DIFFICULTY IN WALKING [None]
  - DYSPHAGIA [None]
  - FACIAL PAIN [None]
  - GASTROINTESTINAL HAEMORRHAGE [None]
  - HEADACHE [None]
  - HEMIPARESIS [None]
  - HYPOAESTHESIA [None]
  - HYPOPERFUSION [None]
  - INFARCTION [None]
  - INTRACRANIAL ANEURYSM [None]
  - MUSCLE TWITCHING [None]
  - PAIN IN EXTREMITY [None]
  - SENSORY LOSS [None]
  - SHOULDER PAIN [None]
  - SPEECH DISORDER [None]
  - TRANSIENT ISCHAEMIC ATTACK [None]
  - VENTRICULAR DYSFUNCTION [None]
  - VENTRICULAR HYPERTROPHY [None]
  - VENTRICULAR WALL THICKENING [None]
